FAERS Safety Report 6866308-5 (Version None)
Quarter: 2010Q2

REPORT INFORMATION
  Report Type: 
  Country: None (occurrence: None)
  Receive Date: 20100602
  Receipt Date: 20100216
  Transmission Date: 20101027
  Serious: Yes (Other)
  Sender: FDA-Public Use
  Company Number: 2212236USA

PATIENT

DRUGS (1)
  1. GABAPENTIN [Suspect]
     Dosage: 600 MG, ORAL
     Route: 048

REACTIONS (11)
  - AMNESTIC DISORDER [None]
  - ANXIETY [None]
  - ATAXIA [None]
  - CONFUSIONAL STATE [None]
  - DISORIENTATION [None]
  - DIZZINESS [None]
  - DRUG DISPENSING ERROR [None]
  - LOSS OF CONSCIOUSNESS [None]
  - MALAISE [None]
  - PANIC DISORDER [None]
  - SYNCOPE [None]
